FAERS Safety Report 4287140-5 (Version None)
Quarter: 2004Q1

REPORT INFORMATION
  Report Type: 
  Country: None (occurrence: None)
  Receive Date: 20040126
  Receipt Date: 20031007
  Transmission Date: 20041129
  Serious: No
  Sender: FDA-Public Use
  Company Number: USA030844973

PATIENT
  Age: 81 Year
  Sex: Female
  Weight: 48 kg

DRUGS (4)
  1. FORTEO [Suspect]
     Indication: OSTEOPOROSIS
     Dosage: 20 UG/1 DAY
     Dates: start: 20030417
  2. OXYBUTYNIN [Concomitant]
  3. CALCIUM [Concomitant]
  4. MULTI-VITAMIN [Concomitant]

REACTIONS (7)
  - DIZZINESS [None]
  - ELECTROCARDIOGRAM ABNORMAL [None]
  - ERYTHEMA [None]
  - FEELING ABNORMAL [None]
  - JOINT SWELLING [None]
  - PAIN IN EXTREMITY [None]
  - SUBCUTANEOUS NODULE [None]
